FAERS Safety Report 7741565-1 (Version None)
Quarter: 2011Q3

REPORT INFORMATION
  Report Type: 
  Country: None (occurrence: None)
  Receive Date: 20110909
  Receipt Date: 20110828
  Transmission Date: 20111222
  Serious: Yes (Hospitalization, Other)
  Sender: FDA-Public Use
  Company Number: US-ELI_LILLY_AND_COMPANY-US201101003066

PATIENT
  Age: 78 Year
  Sex: Female

DRUGS (9)
  1. METHOTREXATE [Concomitant]
     Dosage: 25 MG, WEEKLY (1/W)
  2. VENTOLIN                                /SCH/ [Concomitant]
  3. CALCIUM +D                         /00188401/ [Concomitant]
     Dosage: 600 MG, QD
  4. ADVAIR DISKUS 100/50 [Concomitant]
  5. PRILOSEC [Concomitant]
     Dosage: 20 MG, QD
  6. FORTEO [Suspect]
     Indication: OSTEOPOROSIS
     Dosage: 20 UG, QD
     Route: 065
     Dates: start: 20100701
  7. TRAMADOL HYDROCHLORIDE [Concomitant]
     Dosage: 50 MG, QID
  8. PREDNISONE [Concomitant]
     Dosage: 5 MG, QD
  9. LEVOTHYROXINE SODIUM [Concomitant]
     Dosage: 25 UG, QD

REACTIONS (5)
  - SUBARACHNOID HAEMORRHAGE [None]
  - CORONARY ARTERY DISEASE [None]
  - CORONARY ARTERY OCCLUSION [None]
  - MYOCARDIAL INFARCTION [None]
  - SYNCOPE [None]
